FAERS Safety Report 9213768 (Version 2)
Quarter: 2013Q3

REPORT INFORMATION
  Report Type: Report from Study
  Country: CA (occurrence: CA)
  Receive Date: 20130405
  Receipt Date: 20130723
  Transmission Date: 20140515
  Serious: Yes (Hospitalization)
  Sender: FDA-Public Use
  Company Number: CA-JNJFOC-20130317723

PATIENT
  Age: 76 Year
  Sex: Male
  Weight: 99.3 kg

DRUGS (21)
  1. REMICADE [Suspect]
     Indication: CROHN^S DISEASE
     Route: 042
     Dates: start: 20130521
  2. REMICADE [Suspect]
     Indication: CROHN^S DISEASE
     Route: 042
     Dates: start: 20100521
  3. REMICADE [Suspect]
     Indication: CROHN^S DISEASE
     Route: 042
     Dates: start: 20100507
  4. ACETYL SALICYLIC ACID [Concomitant]
     Route: 065
  5. METOPROLOL [Concomitant]
     Dosage: ^ONCE DAILY AND TWICE DAILY^ BOTH ARE REPORTED
     Route: 065
  6. ATORVASTATIN [Concomitant]
     Route: 065
  7. VITAMIN B12 [Concomitant]
     Route: 030
  8. PANTOLOC [Concomitant]
     Route: 065
  9. FUROSEMIDE [Concomitant]
     Route: 065
  10. LOSARTAN [Concomitant]
     Route: 065
  11. INSULIN NPH [Concomitant]
     Dosage: ^10 UG ^
     Route: 065
  12. SALBUTAMOL [Concomitant]
     Route: 065
  13. WARFARIN [Concomitant]
     Route: 065
  14. NOVOLIN NOS [Concomitant]
     Route: 065
  15. NICOTINE [Concomitant]
     Route: 065
  16. LOSEC [Concomitant]
     Route: 065
  17. LOPERAMIDE [Concomitant]
     Route: 065
  18. PREVACID [Concomitant]
     Route: 065
  19. PNEUMOVAX [Concomitant]
     Route: 065
     Dates: start: 201203
  20. RAMIPRIL [Concomitant]
     Route: 065
  21. REPAGLINIDE [Concomitant]
     Route: 065

REACTIONS (4)
  - Pleural effusion [Unknown]
  - Mass [Unknown]
  - Lung neoplasm malignant [Unknown]
  - Contraindication to vaccination [Unknown]
